FAERS Safety Report 9718378 (Version 1)
Quarter: 2013Q4

REPORT INFORMATION
  Report Type: Not Available
  Country: US (occurrence: US)
  Receive Date: 20131125
  Receipt Date: 20131125
  Transmission Date: 20140711
  Serious: No
  Sender: FDA-Public Use
  Company Number: US-VIVUS-2013V1000634

PATIENT
  Sex: Female

DRUGS (1)
  1. QSYMIA [Suspect]
     Indication: PRODUCT USED FOR UNKNOWN INDICATION
     Dates: start: 20130728

REACTIONS (5)
  - Dyspnoea [Recovered/Resolved]
  - Dizziness [Unknown]
  - Headache [Unknown]
  - Chest pain [Unknown]
  - Mood altered [Recovered/Resolved]
